FAERS Safety Report 6332446-9 (Version None)
Quarter: 2009Q3

REPORT INFORMATION
  Report Type: 
  Country: None (occurrence: None)
  Receive Date: 20090827
  Receipt Date: 20090827
  Transmission Date: 20100115
  Serious: No
  Sender: FDA-Public Use
  Company Number: None

PATIENT
  Sex: Female
  Weight: 108.8633 kg

DRUGS (4)
  1. ESTRADIOL [Suspect]
     Indication: HOT FLUSH
     Dates: start: 20080525, end: 20090401
  2. ESTRADIOL [Suspect]
     Indication: MENOPAUSAL SYMPTOMS
     Dates: start: 20080525, end: 20090401
  3. PROGESTERONE [Suspect]
     Indication: HOT FLUSH
     Dates: start: 20080525, end: 20090401
  4. PROGESTERONE [Suspect]
     Indication: MENOPAUSAL SYMPTOMS
     Dates: start: 20080525, end: 20090401

REACTIONS (5)
  - ANAEMIA [None]
  - DEPRESSION [None]
  - ECONOMIC PROBLEM [None]
  - VAGINAL HAEMORRHAGE [None]
  - WRONG DRUG ADMINISTERED [None]
